FAERS Safety Report 9493721 (Version 1)
Quarter: 2013Q3

REPORT INFORMATION
  Report Type: Spontaneous
  Country: US (occurrence: US)
  Receive Date: 20130902
  Receipt Date: 20130902
  Transmission Date: 20140515
  Serious: Yes (Hospitalization)
  Sender: FDA-Public Use
  Company Number: US-PFIZER INC-2013251540

PATIENT
  Age: 3 Year
  Sex: Male
  Weight: 18.59 kg

DRUGS (1)
  1. ZOSYN [Suspect]
     Indication: APPENDICITIS PERFORATED
     Dosage: 1114 UNK, 4X/DAY
     Dates: start: 20130706, end: 20130722

REACTIONS (4)
  - Serum ferritin increased [Recovered/Resolved]
  - Fibrin D dimer increased [Recovered/Resolved]
  - Thrombocytopenia [Unknown]
  - Neutropenia [Unknown]
